FAERS Safety Report 9667117 (Version 1)
Quarter: 2013Q4

REPORT INFORMATION
  Report Type: Spontaneous
  Country: US (occurrence: US)
  Receive Date: 20131104
  Receipt Date: 20131104
  Transmission Date: 20140711
  Serious: No
  Sender: FDA-Public Use
  Company Number: US-BIOGENIDEC-2013BI089878

PATIENT
  Sex: Female

DRUGS (6)
  1. TECFIDERA [Suspect]
     Indication: MULTIPLE SCLEROSIS
     Route: 048
  2. MODAFINIL [Concomitant]
  3. VITAMIN D [Concomitant]
  4. LORATIDINE [Concomitant]
  5. FISH OIL [Concomitant]
  6. SUPER B COMPLEX [Concomitant]

REACTIONS (1)
  - Abdominal discomfort [Unknown]
